FAERS Safety Report 5128321-8 (Version None)
Quarter: 2006Q4

REPORT INFORMATION
  Report Type: 
  Country: None (occurrence: None)
  Receive Date: 20061011
  Receipt Date: 20060928
  Transmission Date: 20070319
  Serious: Yes (Hospitalization)
  Sender: FDA-Public Use
  Company Number: 2006112084

PATIENT
  Age: 45 Year
  Sex: Male

DRUGS (2)
  1. SUTENT [Suspect]
     Indication: METASTATIC RENAL CELL CARCINOMA
     Dosage: 50 MG (50 MG, 1 IN 1 D), ORAL
     Route: 048
     Dates: start: 20060912, end: 20060914
  2. EPOETIN BETA (EPOETIN BETA) [Concomitant]

REACTIONS (4)
  - ANAEMIA [None]
  - HAEMATURIA [None]
  - HYPERCALCAEMIA [None]
  - URINARY RETENTION [None]
